FAERS Safety Report 15694508 (Version 1)
Quarter: 2018Q4

REPORT INFORMATION
  Report Type: Spontaneous
  Country: US (occurrence: US)
  Receive Date: 20181206
  Receipt Date: 20181206
  Transmission Date: 20190205
  Serious: No
  Sender: FDA-Public Use
  Company Number: US-ENDO PHARMACEUTICALS INC-2017-007762

PATIENT
  Age: 59 Year
  Sex: Male
  Weight: 97.51 kg

DRUGS (6)
  1. XIAFLEX [Suspect]
     Active Substance: COLLAGENASE CLOSTRIDIUM HISTOLYTICUM
     Indication: PEYRONIE^S DISEASE
     Dosage: UNK, 1ST INJECTION, CYCLE 1, UNKNOWN
     Route: 026
     Dates: start: 20170706
  2. XIAFLEX [Suspect]
     Active Substance: COLLAGENASE CLOSTRIDIUM HISTOLYTICUM
     Dosage: UNK, 2ND INJECTION, CYCLE 1, UNKNOWN
     Route: 026
     Dates: start: 20170712
  3. XIAFLEX [Suspect]
     Active Substance: COLLAGENASE CLOSTRIDIUM HISTOLYTICUM
     Dosage: UNK, 1ST INJECTION, CYCLE 2, UNKNOWN
     Route: 026
     Dates: start: 20170823
  4. XIAFLEX [Suspect]
     Active Substance: COLLAGENASE CLOSTRIDIUM HISTOLYTICUM
     Dosage: UNK, 2ND INJECTION, CYCLE 2, UNKNOWN
     Route: 026
     Dates: start: 20170830
  5. XIAFLEX [Suspect]
     Active Substance: COLLAGENASE CLOSTRIDIUM HISTOLYTICUM
     Dosage: UNK, 1ST INJECTION, CYCLE 3, UNKNOWN
     Route: 026
     Dates: start: 20171019
  6. XIAFLEX [Suspect]
     Active Substance: COLLAGENASE CLOSTRIDIUM HISTOLYTICUM
     Dosage: UNK, 2ND INJECTION, CYCLE 3, UNKNOWN
     Route: 026
     Dates: start: 20171025

REACTIONS (3)
  - Penile size reduced [Not Recovered/Not Resolved]
  - Inappropriate schedule of product administration [Recovered/Resolved]
  - Drug ineffective [Not Recovered/Not Resolved]

NARRATIVE: CASE EVENT DATE: 2017
